FAERS Safety Report 19687667 (Version 1)
Quarter: 2021Q3

REPORT INFORMATION
  Report Type: Spontaneous
  Country: US (occurrence: US)
  Receive Date: 20210812
  Receipt Date: 20210812
  Transmission Date: 20211014
  Serious: Yes (Other)
  Sender: FDA-Public Use
  Company Number: US-AUROBINDO-AUR-APL-2021-023720

PATIENT
  Sex: Female

DRUGS (1)
  1. DEXAMFETAMINE+AMFETAMINE 10MG [Suspect]
     Active Substance: AMPHETAMINE\DEXTROAMPHETAMINE
     Indication: ATTENTION DEFICIT HYPERACTIVITY DISORDER
     Dosage: UNK
     Route: 065

REACTIONS (15)
  - Fatigue [Unknown]
  - Dry mouth [Unknown]
  - Eating disorder [Unknown]
  - Mouth swelling [Unknown]
  - Asthenia [Unknown]
  - Drug ineffective [Unknown]
  - Glossitis [Unknown]
  - Headache [Unknown]
  - Oral pain [Unknown]
  - Tongue discolouration [Unknown]
  - Tongue dry [Unknown]
  - Mental impairment [Unknown]
  - Speech disorder [Unknown]
  - Tongue erythema [Unknown]
  - Nasopharyngitis [Unknown]
